FAERS Safety Report 8305102-5 (Version None)
Quarter: 2012Q2

REPORT INFORMATION
  Report Type: 
  Country: None (occurrence: None)
  Receive Date: 20120423
  Receipt Date: 20120413
  Transmission Date: 20120825
  Serious: Yes (Disabling, Other)
  Sender: FDA-Public Use
  Company Number: US-ASTRAZENECA-2012SE08899

PATIENT
  Age: 602 Month
  Sex: Female

DRUGS (4)
  1. SEROQUEL XR [Suspect]
     Route: 048
     Dates: start: 20120209, end: 20120320
  2. SEROQUEL XR [Suspect]
     Route: 048
     Dates: start: 20110510, end: 20120103
  3. LAMOTRGINE [Concomitant]
     Dates: end: 20120320
  4. CLONAZEPAM [Concomitant]

REACTIONS (2)
  - DEEP VEIN THROMBOSIS [None]
  - PULMONARY EMBOLISM [None]
